FAERS Safety Report 15288814 (Version 1)
Quarter: 2018Q3

REPORT INFORMATION
  Report Type: Spontaneous
  Country: US (occurrence: US)
  Receive Date: 20180802
  Receipt Date: 20180802
  Transmission Date: 20181010
  Serious: Yes (Life-Threatening, Hospitalization)
  Sender: FDA-Public Use
  Company Number: None

PATIENT
  Age: 68 Year
  Sex: Male
  Weight: 96 kg

DRUGS (12)
  1. CEFEPINE [Concomitant]
     Dates: start: 20180727, end: 20180730
  2. AMIODARONE [Concomitant]
     Active Substance: AMIODARONE
     Dates: start: 20180730, end: 20180802
  3. ACYCLOVIR. [Concomitant]
     Active Substance: ACYCLOVIR
     Dates: start: 20180726, end: 20180802
  4. LEVETIRA [Concomitant]
     Dates: start: 20180725, end: 20180802
  5. IMODIUM [Concomitant]
     Active Substance: LOPERAMIDE HYDROCHLORIDE
     Dates: start: 20180727, end: 20180728
  6. TAMSULOSIN FLOMAX [Concomitant]
     Dates: start: 20180727, end: 20180730
  7. ONDANSETRON ORAL DISINTEGRATING TAB [Concomitant]
     Dates: start: 20180725, end: 20180727
  8. PEPCID [Concomitant]
     Active Substance: FAMOTIDINE
     Dates: start: 20180724, end: 20180730
  9. YESCARTA [Suspect]
     Active Substance: AXICABTAGENE CILOLEUCEL
     Indication: DIFFUSE LARGE B-CELL LYMPHOMA
     Route: 042
     Dates: start: 20180725, end: 20180725
  10. ALLOPURINOL. [Concomitant]
     Active Substance: ALLOPURINOL
     Dates: start: 20180721, end: 20180730
  11. FILGRASTIM [Concomitant]
     Active Substance: FILGRASTIM
     Dates: start: 20180726, end: 20180731
  12. TYLENOL [Concomitant]
     Active Substance: ACETAMINOPHEN
     Dates: start: 20180726, end: 20180727

REACTIONS (10)
  - Neurotoxicity [None]
  - Cytokine release syndrome [None]
  - Condition aggravated [None]
  - Disorientation [None]
  - Confusional state [None]
  - Atrial fibrillation [None]
  - Swelling [None]
  - Swollen tongue [None]
  - Aggression [None]
  - Communication disorder [None]

NARRATIVE: CASE EVENT DATE: 20180729
